FAERS Safety Report 10526214 (Version 3)
Quarter: 2014Q4

REPORT INFORMATION
  Report Type: Spontaneous
  Country: US (occurrence: US)
  Receive Date: 20141017
  Receipt Date: 20141218
  Transmission Date: 20150528
  Serious: Yes (Hospitalization)
  Sender: FDA-Public Use
  Company Number: US-ACTELION-A-US2014-106608

PATIENT
  Age: 28 Year
  Sex: Female

DRUGS (4)
  1. TRACLEER [Suspect]
     Active Substance: BOSENTAN\BOSENTAN MONOHYDRATE
     Indication: PULMONARY ARTERIAL HYPERTENSION
     Route: 048
  2. VELETRI [Suspect]
     Active Substance: EPOPROSTENOL
     Indication: PULMONARY ARTERIAL HYPERTENSION
     Dosage: 61 NG/KG, PER MIN
     Route: 042
     Dates: start: 20101027
  3. VELETRI [Suspect]
     Active Substance: EPOPROSTENOL
     Dosage: 63 NG/KG, PER MIN
     Route: 042
     Dates: start: 20101026
  4. COUMADIN [Concomitant]
     Active Substance: WARFARIN SODIUM

REACTIONS (4)
  - Catheter site discharge [Unknown]
  - Device related infection [Unknown]
  - Cellulitis [Unknown]
  - Device breakage [Unknown]

NARRATIVE: CASE EVENT DATE: 20141007
